FAERS Safety Report 7476569-X (Version None)
Quarter: 2011Q2

REPORT INFORMATION
  Report Type: 
  Country: None (occurrence: None)
  Receive Date: 20110512
  Receipt Date: 20110503
  Transmission Date: 20111010
  Serious: Yes (Other)
  Sender: FDA-Public Use
  Company Number: PHHY2011CA38425

PATIENT
  Sex: Female

DRUGS (1)
  1. ZOLEDRONOC ACID [Suspect]
     Indication: OSTEOPOROSIS
     Dosage: 5 MG, ONE DOSE ANNUALLY
     Route: 042
     Dates: start: 20100419

REACTIONS (3)
  - HAEMOGLOBIN DECREASED [None]
  - ANAEMIA [None]
  - COLON CANCER [None]
